FAERS Safety Report 6124061-7 (Version None)
Quarter: 2009Q1

REPORT INFORMATION
  Report Type: 
  Country: None (occurrence: None)
  Receive Date: 20090319
  Receipt Date: 20090312
  Transmission Date: 20090719
  Serious: Yes (Death, Other)
  Sender: FDA-Public Use
  Company Number: PHHY2009BR09227

PATIENT
  Age: 23 Year
  Sex: Male

DRUGS (8)
  1. CYCLOSPORINE [Suspect]
     Indication: STEM CELL TRANSPLANT
     Dosage: UNK
  2. CYCLOSPORINE [Suspect]
     Indication: PROPHYLAXIS AGAINST GRAFT VERSUS HOST DISEASE
     Dosage: 300 MG/KG/DAY
  3. MYCOPHENOLATE MOFETIL [Suspect]
     Indication: STEM CELL TRANSPLANT
  4. MYCOPHENOLATE MOFETIL [Suspect]
     Indication: PROPHYLAXIS AGAINST GRAFT VERSUS HOST DISEASE
  5. ANTIBIOTICS [Concomitant]
     Indication: PROPHYLAXIS
  6. CYCLOPHOSPHAMIDE [Concomitant]
     Dosage: 50 MG/KG, QD; TOTAL DOSE 200 MG/KG
  7. HORSE ANTITHYMOCYTE IMMUNOGLOBULIN [Concomitant]
     Dosage: 2.5 MG/KG/DAY; TOTAL DOSE 10MG/KG
  8. IRRADIATION [Concomitant]
     Dosage: 200 CGY

REACTIONS (11)
  - CENTRAL NERVOUS SYSTEM LESION [None]
  - DIFFUSE LARGE B-CELL LYMPHOMA [None]
  - DYSPHAGIA [None]
  - EPSTEIN-BARR VIRUS ASSOCIATED LYMPHOPROLIFERATIVE DISORDER [None]
  - EPSTEIN-BARR VIRUS INFECTION [None]
  - GRAFT VERSUS HOST DISEASE [None]
  - LYMPHADENOPATHY [None]
  - MIGRAINE [None]
  - NASAL CAVITY MASS [None]
  - NASAL CONGESTION [None]
  - SINUSITIS [None]
